FAERS Safety Report 10134196 (Version 1)
Quarter: 2014Q2

REPORT INFORMATION
  Report Type: Spontaneous
  Country: US (occurrence: US)
  Receive Date: 20140428
  Receipt Date: 20140428
  Transmission Date: 20141212
  Serious: No
  Sender: FDA-Public Use
  Company Number: US-SANOFI-AVENTIS-2013SA077437

PATIENT
  Sex: Male

DRUGS (3)
  1. ALLEGRA 24 HOUR [Suspect]
     Indication: HYPERSENSITIVITY
     Route: 065
  2. CLARITIN [Suspect]
     Indication: HYPERSENSITIVITY
     Route: 065
  3. ALL OTHER THERAPEUTIC PRODUCTS [Suspect]
     Indication: HYPERSENSITIVITY
     Route: 065

REACTIONS (4)
  - Pulmonary congestion [Unknown]
  - Hypersomnia [Unknown]
  - Headache [Unknown]
  - Drug ineffective [Unknown]
